FAERS Safety Report 14242383 (Version 11)
Quarter: 2019Q4

REPORT INFORMATION
  Report Type: Spontaneous
  Country: US (occurrence: US)
  Receive Date: 20171201
  Receipt Date: 20191220
  Transmission Date: 20200122
  Serious: No
  Sender: FDA-Public Use
  Company Number: US-PFIZER INC-2017514499

PATIENT
  Age: 64 Year
  Sex: Female
  Weight: 113 kg

DRUGS (33)
  1. ADVAIR HFA [Concomitant]
     Active Substance: FLUTICASONE PROPIONATE\SALMETEROL XINAFOATE
     Dosage: 1 DF, 2X/DAY [FLUTICASONE PROPIONATE 500 MCG] / [SALMETEROL XINAFOATE 50MCG] DOSE AEROSOL POWDER)
     Route: 055
  2. ANTIVERT [Concomitant]
     Active Substance: MECLIZINE HYDROCHLORIDE
     Dosage: 12.5 MG, AS NEEDED (TAKE 1 TABLET BY MOUTH 2 TIMES DAILY AS NEEDED)
     Route: 048
  3. ZOFRAN [Concomitant]
     Active Substance: ONDANSETRON HYDROCHLORIDE
     Indication: NAUSEA
     Dosage: 4 MG, AS NEEDED (TAKE 1 TABLET BY MOUTH EVERY 8 HOURS AS NEEDED)
  4. FLONASE [Concomitant]
     Active Substance: FLUTICASONE PROPIONATE
     Dosage: 2 DF, 2X/DAY (1 SPRAY BY EACH NARE ROUTE 2 TMES DAILY)
     Route: 045
  5. MAGNESIUM [Concomitant]
     Active Substance: MAGNESIUM
     Dosage: 250 MG, DAILY (TAKE 1 TABLET BY MOUTH DAILY)
     Route: 048
  6. NORVASC [Concomitant]
     Active Substance: AMLODIPINE BESYLATE
     Dosage: 5 MG, DAILY
     Route: 048
  7. FLONASE [Concomitant]
     Active Substance: FLUTICASONE PROPIONATE
     Dosage: UNK, DAILY
  8. PREMARIN [Suspect]
     Active Substance: ESTROGENS, CONJUGATED
     Indication: HORMONE REPLACEMENT THERAPY
     Dosage: 1.25 MG, 1X/DAY
     Route: 048
     Dates: start: 1980
  9. PROAIR HFA [Concomitant]
     Active Substance: ALBUTEROL SULFATE
     Indication: DYSPNOEA
     Dosage: 2 DF, AS NEEDED (INHALE 2 PUFFS INTO THE LUNGS EVERY 4 HOURS AS NEEDED )
     Route: 055
  10. WELLBUTRIN [Concomitant]
     Active Substance: BUPROPION HYDROCHLORIDE
     Dosage: UNK, DAILY
  11. CHROMIUM [CHROMIUM PICOLINATE] [Concomitant]
     Dosage: UNK
     Route: 048
  12. CALCIUM 600 PLUS VITAMIN D3 [Concomitant]
     Dosage: 1 DF, 2X/DAY (CALCIUM 600 MG; VITAMIN D 400 MG)
     Route: 048
  13. AMARYL [Concomitant]
     Active Substance: GLIMEPIRIDE
     Dosage: 4 MG, 1X/DAY(TAKES 2 TABLET BY MOUTH EVERY MORNING)
     Route: 048
  14. BACTROBAN [Concomitant]
     Active Substance: MUPIROCIN\MUPIROCIN CALCIUM
     Dosage: UNK UNK, 3X/DAY
     Route: 061
  15. PROVENTIL HFA [Concomitant]
     Active Substance: ALBUTEROL SULFATE
     Indication: WHEEZING
  16. VENTOLIN HFA [Concomitant]
     Active Substance: ALBUTEROL SULFATE
     Indication: DYSPNOEA
     Dosage: 2 DF, AS NEEDED (INHALE 2 PUFFS EVERY 4 HOUR AS NEEDED)
     Route: 055
  17. VENTOLIN HFA [Concomitant]
     Active Substance: ALBUTEROL SULFATE
     Indication: WHEEZING
  18. PROVENTIL [SALBUTAMOL SULFATE] [Concomitant]
     Dosage: 3 ML, AS NEEDED
     Route: 055
  19. TENORMIN [Concomitant]
     Active Substance: ATENOLOL
     Dosage: 50 MG, DAILY (TAKE 1 TABLET BY MOUTH DAILY)
     Route: 048
  20. FLUTICASONE PROPIONATE AND SALMETEROL [Concomitant]
     Active Substance: FLUTICASONE PROPIONATE\SALMETEROL XINAFOATE
     Dosage: 1 DF, 2X/DAY [(FLUTICASONE PROPIONATE 250 MCG) / (SALMETEROL 50MCG) DOSE AEROSOL POWDER]
     Route: 055
  21. LEVOTHYROXINE [LEVOTHYROXINE SODIUM] [Concomitant]
     Active Substance: LEVOTHYROXINE SODIUM
     Dosage: 100 UG, DAILY (TAKE 1 TABLET BY MOUTH DAILY)
     Route: 048
  22. PROAIR HFA [Concomitant]
     Active Substance: ALBUTEROL SULFATE
     Indication: WHEEZING
  23. PROVENTIL HFA [Concomitant]
     Active Substance: ALBUTEROL SULFATE
     Indication: DYSPNOEA
     Dosage: 2 DF, AS NEEDED (INHALE 2 PUFFS INTO THE LUNGS EVERY 4 HOURS AS NEEDED )
     Route: 055
  24. PROVENTIL [SALBUTAMOL SULFATE] [Concomitant]
     Indication: WHEEZING
     Dosage: 3 ML, AS NEEDED
     Route: 055
  25. CLARITIN [Concomitant]
     Active Substance: LORATADINE
     Dosage: 10 MG, DAILY (TAKE 1 TABLET BY MOUTH DAILY)
     Route: 048
  26. MYCOSTATIN [Concomitant]
     Active Substance: NYSTATIN
     Indication: RASH
     Dosage: UNK UNK, 2X/DAY
     Route: 061
  27. PREMARIN [Suspect]
     Active Substance: ESTROGENS, CONJUGATED
     Indication: PREMATURE MENOPAUSE
     Dosage: 1.25 MG, DAILY (ONE TABLET BY MOUTH DAILY)
     Route: 048
     Dates: start: 198107
  28. PREMARIN [Suspect]
     Active Substance: ESTROGENS, CONJUGATED
     Indication: MENOPAUSE
     Dosage: 1.25 MG, UNK
     Route: 048
  29. WELLBUTRIN [Concomitant]
     Active Substance: BUPROPION HYDROCHLORIDE
     Dosage: 75 MG, 2X/DAY
     Route: 048
  30. COZAAR [Concomitant]
     Active Substance: LOSARTAN POTASSIUM
     Dosage: 25 MG, DAILY (TAKE 1 TABLET BY MOUTH DAILY)
     Route: 048
  31. GLUCOPHAGE XR [Concomitant]
     Active Substance: METFORMIN HYDROCHLORIDE
     Dosage: 1000 MG, DAILY [ TAKE 2 TABLETS BY MOUTH DAILY (WITH BREAKFAST]
     Route: 048
  32. LYRICA [Concomitant]
     Active Substance: PREGABALIN
     Dosage: 25 MG, 1X/DAY (TAKE 1 CAPSULE BY MOUTH EVERY EVENING)
     Route: 048
  33. SPIRIVA [Concomitant]
     Active Substance: TIOTROPIUM BROMIDE MONOHYDRATE
     Dosage: 5 UG, DAILY (INHALE 2 PUFFS INTO THE LUNGS DAILY)
     Route: 055

REACTIONS (8)
  - Migraine [Recovered/Resolved]
  - Headache [Recovered/Resolved]
  - Malaise [Unknown]
  - Mood swings [Recovered/Resolved]
  - Muscle spasms [Unknown]
  - Pain [Unknown]
  - Nasopharyngitis [Recovered/Resolved]
  - Bone disorder [Recovered/Resolved]
